FAERS Safety Report 17929452 (Version 1)
Quarter: 2020Q2

REPORT INFORMATION
  Report Type: Spontaneous
  Country: US (occurrence: US)
  Receive Date: 20200623
  Receipt Date: 20200623
  Transmission Date: 20200714
  Serious: No
  Sender: FDA-Public Use
  Company Number: US-ALLERGAN-1922010US

PATIENT
  Sex: Female

DRUGS (2)
  1. KYBELLA [Suspect]
     Active Substance: DEOXYCHOLIC ACID
     Indication: LIPOLYSIS PROCEDURE
  2. UNSPECIFIED MEDICATION [Concomitant]
     Active Substance: UNSPECIFIED INGREDIENT
     Indication: TYPE 1 DIABETES MELLITUS
     Dosage: UNK
     Route: 048

REACTIONS (4)
  - Wrong technique in product usage process [Unknown]
  - Injection site bruising [Recovered/Resolved]
  - Vascular injury [Unknown]
  - Injection site pain [Not Recovered/Not Resolved]
